FAERS Safety Report 8427493-7 (Version None)
Quarter: 2012Q2

REPORT INFORMATION
  Report Type: 
  Country: None (occurrence: None)
  Receive Date: 20120611
  Receipt Date: 20120605
  Transmission Date: 20120825
  Serious: Yes (Other)
  Sender: FDA-Public Use
  Company Number: US-ELI_LILLY_AND_COMPANY-US201206002170

PATIENT
  Age: 73 Year
  Sex: Male

DRUGS (2)
  1. CIALIS [Suspect]
     Dosage: 10 MG, PRN
  2. CIALIS [Suspect]
     Dosage: 20 MG, PRN

REACTIONS (4)
  - PROCEDURAL COMPLICATION [None]
  - HIP ARTHROPLASTY [None]
  - DRUG INEFFECTIVE [None]
  - CORONARY ARTERY OCCLUSION [None]
